FAERS Safety Report 21087571 (Version 2)
Quarter: 2022Q3

REPORT INFORMATION
  Report Type: Spontaneous
  Country: NO (occurrence: NO)
  Receive Date: 20220715
  Receipt Date: 20220919
  Transmission Date: 20221026
  Serious: Yes (Death)
  Sender: FDA-Public Use
  Company Number: None

PATIENT
  Age: 65 Year
  Sex: Male

DRUGS (20)
  1. OXALIPLATIN [Suspect]
     Active Substance: OXALIPLATIN
     Indication: Chemotherapy
     Dosage: 280 MG ON DAY 1, IN 3-WEEK CYCLES.
     Dates: start: 20220620
  2. CAPECITABINE [Suspect]
     Active Substance: CAPECITABINE
     Indication: Chemotherapy
     Dosage: 2000 MG X 2 ON DAY 1 - 14 IN 3 WEEK CYCLES
     Dates: start: 20220620
  3. CRESTOR [Concomitant]
     Active Substance: ROSUVASTATIN CALCIUM
     Indication: Hypercholesterolaemia
  4. CRESTOR [Concomitant]
     Active Substance: ROSUVASTATIN CALCIUM
  5. IMOVANE [Concomitant]
     Active Substance: ZOPICLONE
     Indication: Sleep disorder
     Dosage: 1 TABLET BEFORE GOING TO BED
  6. IMOVANE [Concomitant]
     Active Substance: ZOPICLONE
     Dosage: 1 TABLET BEFORE GOING TO BED
  7. NYCOPLUS MAGNESIUM [Concomitant]
     Indication: Magnesium deficiency
     Dosage: 350 MG X 2
  8. NYCOPLUS MAGNESIUM [Concomitant]
     Dosage: 350 MG X 2
  9. ELIQUIS [Concomitant]
     Active Substance: APIXABAN
     Indication: Anticoagulant therapy
  10. ELIQUIS [Concomitant]
     Active Substance: APIXABAN
  11. TESTOSTERONE [Concomitant]
     Active Substance: TESTOSTERONE
  12. TESTOSTERONE [Concomitant]
     Active Substance: TESTOSTERONE
  13. CIALIS [Concomitant]
     Active Substance: TADALAFIL
     Dosage: 1 TABLET WHEN NEEDED
  14. CIALIS [Concomitant]
     Active Substance: TADALAFIL
     Indication: Product used for unknown indication
     Dosage: 1 TABLET WHEN NEEDED
  15. IMODIUM [Concomitant]
     Active Substance: LOPERAMIDE HYDROCHLORIDE
     Indication: Diarrhoea
     Dosage: ADJUST AFTER NEED
  16. IMODIUM [Concomitant]
     Active Substance: LOPERAMIDE HYDROCHLORIDE
     Dosage: ADJUST AFTER NEED
  17. AMLODIPINE [Concomitant]
     Active Substance: AMLODIPINE BESYLATE
     Indication: Hypertension
  18. Natron NAF [Concomitant]
     Indication: Hyponatraemia
  19. NEXIUM [Concomitant]
     Active Substance: ESOMEPRAZOLE MAGNESIUM
     Indication: Antacid therapy
  20. Vi-Siblin [Concomitant]
     Indication: Product used for unknown indication
     Dosage: 1 DOSAGE FORM UP TO 2 TIMES A DAY

REACTIONS (1)
  - Death [Fatal]

NARRATIVE: CASE EVENT DATE: 20220625
